FAERS Safety Report 23195988 (Version 1)
Quarter: 2023Q4

REPORT INFORMATION
  Report Type: Spontaneous
  Country: CA (occurrence: None)
  Receive Date: 20231117
  Receipt Date: 20231117
  Transmission Date: 20240110
  Serious: Yes (Other)
  Sender: FDA-Public Use
  Company Number: CA-PFIZER INC-202300145876

PATIENT
  Age: 33 Year
  Sex: Female

DRUGS (7)
  1. METHOTREXATE [Suspect]
     Active Substance: METHOTREXATE
     Indication: Rheumatoid arthritis
  2. PLAQUENIL [Concomitant]
     Active Substance: HYDROXYCHLOROQUINE SULFATE
  3. IMURAN [Concomitant]
     Active Substance: AZATHIOPRINE
  4. RUXIENCE [Concomitant]
     Active Substance: RITUXIMAB-PVVR
     Indication: Rheumatoid arthritis
     Dosage: DAY 1 AND DAY 15
     Dates: start: 20221028, end: 20221111
  5. RUXIENCE [Concomitant]
     Active Substance: RITUXIMAB-PVVR
     Dosage: DAY 1 AND DAY 15, SUBSEQUENT
     Dates: start: 20230503
  6. RUXIENCE [Concomitant]
     Active Substance: RITUXIMAB-PVVR
     Dosage: DAY 1 AND DAY 15, SUBSEQUENT
     Dates: start: 20230518
  7. SULFASALAZINE [Concomitant]
     Active Substance: SULFASALAZINE

REACTIONS (5)
  - Interstitial lung disease [Unknown]
  - Treatment failure [Unknown]
  - Rheumatoid arthritis [Not Recovered/Not Resolved]
  - Liver function test increased [Unknown]
  - COVID-19 [Recovering/Resolving]
